FAERS Safety Report 5863964-5 (Version None)
Quarter: 2008Q3

REPORT INFORMATION
  Report Type: 
  Country: None (occurrence: None)
  Receive Date: 20080829
  Receipt Date: 20080821
  Transmission Date: 20090109
  Serious: Yes (Hospitalization)
  Sender: FDA-Public Use
  Company Number: PHHY2008ES18115

PATIENT
  Age: 58 Year
  Sex: Female

DRUGS (4)
  1. TEGRETOL-XR [Suspect]
     Indication: EPILEPSY
     Dosage: 600 MG/DAY
     Route: 048
  2. TEGRETOL-XR [Suspect]
     Dosage: 1600 MG
     Route: 048
     Dates: start: 20080814, end: 20080814
  3. TEGRETOL [Suspect]
     Dosage: 1600 MG
     Route: 048
     Dates: start: 20080814, end: 20080814
  4. ALCOHOL [Suspect]
     Route: 048

REACTIONS (5)
  - ANTICONVULSANT DRUG LEVEL INCREASED [None]
  - ASTHENIA [None]
  - COMA [None]
  - GAIT DISTURBANCE [None]
  - INTENTIONAL OVERDOSE [None]
